FAERS Safety Report 7563644-4 (Version None)
Quarter: 2011Q2

REPORT INFORMATION
  Report Type: 
  Country: None (occurrence: None)
  Receive Date: 20110622
  Receipt Date: 20110607
  Transmission Date: 20111010
  Serious: Yes (Hospitalization, Other)
  Sender: FDA-Public Use
  Company Number: US-ROCHE-708062

PATIENT
  Sex: Female

DRUGS (5)
  1. PACLITAXEL [Suspect]
     Dosage: DRUG RECEIVED OVER 1 HOUR ON DAYS 1, 8 AND 15.
     Route: 042
     Dates: start: 20100317
  2. NEXIUM [Concomitant]
  3. CARBOPLATIN [Suspect]
     Dosage: DOSE REPORTED AS AUC 6 ON DAY 1.
     Route: 042
     Dates: start: 20100317
  4. BEVACIZUMAB [Suspect]
     Dosage: DRUG GIVEN OVER 30-90 MINUTES ON DAY 1, CYCLE 2.
     Route: 042
     Dates: start: 20100317
  5. SYNTHROID [Concomitant]
     Indication: HYPOTHYROIDISM

REACTIONS (20)
  - WOUND INFECTION [None]
  - SINUS TACHYCARDIA [None]
  - HAEMOGLOBIN DECREASED [None]
  - BACK PAIN [None]
  - INFECTION [None]
  - EAR PAIN [None]
  - NEUTROPHIL COUNT DECREASED [None]
  - STOMATITIS [None]
  - HYPOXIA [None]
  - OTITIS EXTERNA [None]
  - WHITE BLOOD CELL COUNT DECREASED [None]
  - OROPHARYNGEAL PAIN [None]
  - FEBRILE NEUTROPENIA [None]
  - PNEUMONIA [None]
  - OSTEOMYELITIS [None]
  - LETHARGY [None]
  - ANXIETY [None]
  - DYSPNOEA [None]
  - HYPERTENSION [None]
  - MUSCULOSKELETAL CHEST PAIN [None]
